FAERS Safety Report 24778950 (Version 1)
Quarter: 2024Q4

REPORT INFORMATION
  Report Type: Report from Study
  Country: RO (occurrence: RO)
  Receive Date: 20241226
  Receipt Date: 20241226
  Transmission Date: 20250114
  Serious: Yes (Life-Threatening, Hospitalization)
  Sender: JOHNSON AND JOHNSON
  Company Number: RO-JNJFOC-20240329491

PATIENT
  Age: 60 Year
  Sex: Male
  Weight: 70 kg

DRUGS (4)
  1. TALQUETAMAB [Suspect]
     Active Substance: TALQUETAMAB
     Indication: Plasma cell myeloma refractory
     Dosage: FOLLOWING A 28-DAY CYCLE SCHEDULE.
     Route: 058
     Dates: start: 20231009
  2. TALQUETAMAB [Suspect]
     Active Substance: TALQUETAMAB
     Dosage: THE LAST ADMINISTRATION OF TALQUETAMAB OCCURRED ON FEBRUARY 28, 2024.
     Route: 058
     Dates: end: 20240228
  3. ELIQUIS [Concomitant]
     Active Substance: APIXABAN
     Route: 048
  4. ACYCLOVIR [Concomitant]
     Active Substance: ACYCLOVIR
     Route: 048

REACTIONS (3)
  - Secondary immunodeficiency [Recovered/Resolved]
  - Infection [Recovered/Resolved]
  - Staphylococcal infection [Recovering/Resolving]

NARRATIVE: CASE EVENT DATE: 20240103
